FAERS Safety Report 19679496 (Version 1)
Quarter: 2021Q3

REPORT INFORMATION
  Report Type: Spontaneous
  Country: CA (occurrence: CA)
  Receive Date: 20210810
  Receipt Date: 20210810
  Transmission Date: 20211014
  Serious: Yes (Disabling)
  Sender: FDA-Public Use
  Company Number: CA-TEVA-2021-CA-1939339

PATIENT
  Sex: Male
  Weight: 32 kg

DRUGS (10)
  1. SALBUTAMOL [Concomitant]
     Active Substance: ALBUTEROL
     Route: 065
  2. MELATONIN [Concomitant]
     Active Substance: MELATONIN
     Route: 065
  3. PANCRELIPASE. [Concomitant]
     Active Substance: PANCRELIPASE
     Route: 065
  4. PULMOZYME [Concomitant]
     Active Substance: DORNASE ALFA
     Route: 065
  5. HYPERTONIC SALINE [Concomitant]
     Active Substance: SODIUM CHLORIDE
     Route: 065
  6. MULTIVITAMINS WITH MINERALS [Concomitant]
     Active Substance: MINERALS\VITAMINS
     Route: 065
  7. URSODIOL. [Concomitant]
     Active Substance: URSODIOL
     Route: 065
  8. OMEPRAZOLE. [Suspect]
     Active Substance: OMEPRAZOLE
     Indication: GASTROOESOPHAGEAL REFLUX DISEASE
     Dosage: 40 MILLIGRAM DAILY;
     Route: 048
  9. COTRIMOXAZOLE [Concomitant]
     Active Substance: SULFAMETHOXAZOLE\TRIMETHOPRIM
     Route: 065
  10. MOMETASONE FUROATE. [Concomitant]
     Active Substance: MOMETASONE FUROATE
     Route: 065

REACTIONS (5)
  - Abnormal behaviour [Recovered/Resolved]
  - Depression [Recovered/Resolved]
  - Head banging [Recovered/Resolved]
  - Aggression [Recovered/Resolved]
  - Intentional self-injury [Recovered/Resolved]
